FAERS Safety Report 21254722 (Version 1)
Quarter: 2022Q3

REPORT INFORMATION
  Report Type: Spontaneous
  Country: US (occurrence: US)
  Receive Date: 20220825
  Receipt Date: 20220825
  Transmission Date: 20221027
  Serious: Yes (Hospitalization, Other)
  Sender: FDA-Public Use
  Company Number: US-TAKEDA-2022TUS057112

PATIENT
  Age: 78 Year
  Sex: Male
  Weight: 98.6 kg

DRUGS (28)
  1. NINLARO [Suspect]
     Active Substance: IXAZOMIB CITRATE
     Indication: Plasma cell myeloma
     Dosage: 3 MILLIGRAM, 1/WEEK
     Route: 048
     Dates: start: 20210518
  2. DARATUMUMAB [Suspect]
     Active Substance: DARATUMUMAB
     Indication: Plasma cell myeloma
     Dosage: 1800 MILLIGRAM, MONTHLY
     Route: 048
     Dates: start: 20210518
  3. POMALID [Concomitant]
     Dosage: 2 MILLIGRAM, QD
     Route: 048
     Dates: start: 20210518
  4. ACETAMINOPHEN [Concomitant]
     Active Substance: ACETAMINOPHEN
     Dosage: 650 MILLIGRAM, Q6HR
     Route: 048
  5. ALBUTEROL\IPRATROPIUM [Concomitant]
     Active Substance: ALBUTEROL\IPRATROPIUM
     Dosage: 3 MILLILITER, QD
     Route: 055
  6. ASPIRIN [Concomitant]
     Active Substance: ASPIRIN
     Dosage: 81 MILLIGRAM, QD
     Route: 048
  7. ATORVASTATIN [Concomitant]
     Active Substance: ATORVASTATIN
     Dosage: 10 MILLIGRAM, QD
     Route: 048
  8. AZITHROMYCIN [Concomitant]
     Active Substance: AZITHROMYCIN
     Dosage: 1 GRAM
     Route: 042
  9. CLOPIDOGREL [Concomitant]
     Active Substance: CLOPIDOGREL BISULFATE
     Dosage: 75 MILLIGRAM, QD
     Route: 048
  10. DEXTROSE [Concomitant]
     Active Substance: DEXTROSE
     Dosage: 50 MILLILITER
     Route: 042
  11. DOCUSATE CALCIUM [Concomitant]
     Active Substance: DOCUSATE CALCIUM
     Dosage: 100 MILLIGRAM, BID
     Route: 048
  12. FEBUXOSTAT [Concomitant]
     Active Substance: FEBUXOSTAT
     Dosage: 40 MILLIGRAM, QD
     Route: 048
  13. GLUCAGON [Concomitant]
     Active Substance: GLUCAGON
     Dosage: 1 MILLIGRAM
     Route: 065
  14. LOSARTAN [Concomitant]
     Active Substance: LOSARTAN
     Dosage: 25 MILLIGRAM, QD
     Route: 048
  15. MELATONIN [Concomitant]
     Active Substance: MELATONIN
     Dosage: 5 MILLIGRAM, QD
     Route: 048
  16. NALOXONE [Concomitant]
     Active Substance: NALOXONE
     Dosage: 0.25 MILLILITER
     Route: 042
  17. PANTOPRAZOLE [Concomitant]
     Active Substance: PANTOPRAZOLE
     Dosage: 40 MILLIGRAM, QD
     Route: 048
  18. POMALIDOMIDE [Concomitant]
     Active Substance: POMALIDOMIDE
     Dosage: 2 MILLIGRAM, QD
     Route: 048
  19. SENNA [Concomitant]
     Active Substance: SENNA LEAF\SENNOSIDES\SENNOSIDES A AND B
     Dosage: 8.6 MILLIGRAM, QD
     Route: 048
  20. SYNTHROID [Concomitant]
     Active Substance: LEVOTHYROXINE SODIUM
     Dosage: 88 MICROGRAM, QD
     Route: 048
  21. TAMSULOSIN [Concomitant]
     Active Substance: TAMSULOSIN
     Dosage: 0.4 MILLIGRAM, QD
     Route: 048
  22. BUMETANIDE [Concomitant]
     Active Substance: BUMETANIDE
     Dosage: 1 MILLIGRAM, QD
     Route: 048
  23. CHOLECALCIFEROL [Concomitant]
     Active Substance: CHOLECALCIFEROL
  24. DEXAMETHASONE [Concomitant]
     Active Substance: DEXAMETHASONE
  25. GLIPIZIDE [Concomitant]
     Active Substance: GLIPIZIDE
     Dosage: 5 MILLIGRAM, QD
     Route: 048
  26. METOPROLOL SUCCINATE [Concomitant]
     Active Substance: METOPROLOL SUCCINATE
     Dosage: 50 MILLIGRAM, QD
     Route: 048
  27. OMEPRAZOLE [Concomitant]
     Active Substance: OMEPRAZOLE
     Dosage: 20 MILLIGRAM, QD
     Route: 048
  28. TRADJENTA [Concomitant]
     Active Substance: LINAGLIPTIN
     Route: 065

REACTIONS (1)
  - Hypoxia [Unknown]

NARRATIVE: CASE EVENT DATE: 20220815
